FAERS Safety Report 6908514-7 (Version None)
Quarter: 2010Q3

REPORT INFORMATION
  Report Type: 
  Country: None (occurrence: None)
  Receive Date: 20100805
  Receipt Date: 20100728
  Transmission Date: 20110219
  Serious: Yes (Hospitalization, Other)
  Sender: FDA-Public Use
  Company Number: US-JNJFOC-20100402914

PATIENT
  Sex: Female
  Weight: 58.4 kg

DRUGS (6)
  1. LEVAQUIN [Suspect]
     Indication: VIRAL INFECTION
     Route: 048
  2. LEVAQUIN [Suspect]
     Indication: DIARRHOEA
     Route: 042
  3. LEVAQUIN [Suspect]
     Indication: VOMITING
     Route: 042
  4. LEVAQUIN [Suspect]
     Indication: PYREXIA
     Route: 042
  5. PREDNISONE [Suspect]
     Indication: RENAL TRANSPLANT
     Route: 065
  6. CIPROFLOXACIN [Suspect]
     Indication: URINARY TRACT INFECTION
     Route: 065

REACTIONS (7)
  - DIARRHOEA [None]
  - DISTURBANCE IN ATTENTION [None]
  - FEELING ABNORMAL [None]
  - MEMORY IMPAIRMENT [None]
  - MENTAL IMPAIRMENT [None]
  - TENDON PAIN [None]
  - TENDON RUPTURE [None]
